FAERS Safety Report 7461997-9 (Version None)
Quarter: 2011Q2

REPORT INFORMATION
  Report Type: 
  Country: None (occurrence: None)
  Receive Date: 20110506
  Receipt Date: 20110427
  Transmission Date: 20111010
  Serious: Yes (Hospitalization)
  Sender: FDA-Public Use
  Company Number: PHHO2008CH14614

PATIENT
  Sex: Female
  Weight: 56 kg

DRUGS (1)
  1. FTY 720 [Suspect]
     Indication: MULTIPLE SCLEROSIS
     Dosage: 1.25 MG, QD
     Route: 048
     Dates: start: 20071220

REACTIONS (3)
  - UTERINE DILATION AND CURETTAGE [None]
  - CERVICAL DYSPLASIA [None]
  - PAPILLOMA VIRAL INFECTION [None]
